FAERS Safety Report 26090481 (Version 1)
Quarter: 2025Q4

REPORT INFORMATION
  Report Type: Spontaneous
  Country: US (occurrence: US)
  Receive Date: 20251126
  Receipt Date: 20251126
  Transmission Date: 20260117
  Serious: No
  Sender: SANDOZ
  Company Number: US-SANDOZ-SDZ2025US087217

PATIENT

DRUGS (1)
  1. IRON SUCROSE [Suspect]
     Active Substance: IRON SUCROSE
     Indication: Product used for unknown indication
     Dosage: UNK, 50 MG/2.5 ML, 100 MG  /5 ML AND 200 MG/ 10 ML, 10ML 1LIVI
     Route: 065
     Dates: start: 20251117

REACTIONS (2)
  - Rash [Unknown]
  - Pruritus [Unknown]

NARRATIVE: CASE EVENT DATE: 20251117
